FAERS Safety Report 6237729-9 (Version None)
Quarter: 2009Q2

REPORT INFORMATION
  Report Type: 
  Country: None (occurrence: None)
  Receive Date: 20090617
  Receipt Date: 20090603
  Transmission Date: 20091009
  Serious: Yes (Death, Hospitalization)
  Sender: FDA-Public Use
  Company Number: 1-18707502

PATIENT
  Sex: Male

DRUGS (3)
  1. PROPRANOLOL [Suspect]
     Indication: SINUS TACHYCARDIA
  2. PROPRANOLOL [Suspect]
     Indication: ATRIAL FIBRILLATION
     Dosage: 1 MG X2, INTRAVENOUS
     Route: 042
  3. CARBIMAZOLE [Concomitant]

REACTIONS (16)
  - ABDOMINAL DISTENSION [None]
  - ABDOMINAL TENDERNESS [None]
  - ASCITES [None]
  - ATRIAL FIBRILLATION [None]
  - BLOOD BILIRUBIN INCREASED [None]
  - BLOOD PRESSURE DECREASED [None]
  - BLOOD SODIUM DECREASED [None]
  - CARDIOMEGALY [None]
  - CONDITION AGGRAVATED [None]
  - ELECTROMECHANICAL DISSOCIATION [None]
  - HYPERTHYROIDISM [None]
  - PLEURAL EFFUSION [None]
  - PNEUMONIA [None]
  - PULMONARY OEDEMA [None]
  - TREATMENT NONCOMPLIANCE [None]
  - VENTRICULAR FAILURE [None]
